FAERS Safety Report 8255397-1 (Version None)
Quarter: 2012Q2

REPORT INFORMATION
  Report Type: 
  Country: None (occurrence: None)
  Receive Date: 20120403
  Receipt Date: 20120327
  Transmission Date: 20120825
  Serious: Yes (Other)
  Sender: FDA-Public Use
  Company Number: FR-ASTELLAS-2012EU002001

PATIENT
  Age: 60 Year
  Sex: Female

DRUGS (2)
  1. TACROLIMUS [Suspect]
     Dosage: UNK
     Route: 065
  2. PROGRAF [Suspect]
     Dosage: UNK
     Route: 065

REACTIONS (3)
  - TRANSPLANT REJECTION [None]
  - MEDICATION ERROR [None]
  - DYSPEPSIA [None]
